FAERS Safety Report 11343462 (Version 1)
Quarter: 2015Q3

REPORT INFORMATION
  Report Type: Report from Study
  Country: DE (occurrence: DE)
  Receive Date: 20150806
  Receipt Date: 20150806
  Transmission Date: 20151125
  Serious: Yes (Hospitalization)
  Sender: FDA-Public Use
  Company Number: DE-ABBVIE-15K-062-1437819-00

PATIENT
  Sex: Male

DRUGS (12)
  1. MTX [Concomitant]
     Active Substance: METHOTREXATE SODIUM
  2. RITUXIMAB [Concomitant]
     Active Substance: RITUXIMAB
     Indication: PRODUCT USED FOR UNKNOWN INDICATION
     Dates: start: 200610
  3. MTX [Concomitant]
     Active Substance: METHOTREXATE SODIUM
     Indication: PRODUCT USED FOR UNKNOWN INDICATION
     Dates: start: 200512
  4. HUMIRA [Suspect]
     Active Substance: ADALIMUMAB
     Indication: RHEUMATOID ARTHRITIS
     Route: 065
     Dates: start: 200512, end: 200608
  5. RITUXIMAB [Concomitant]
     Active Substance: RITUXIMAB
     Dates: start: 200705
  6. MTX [Concomitant]
     Active Substance: METHOTREXATE SODIUM
     Dates: start: 200705
  7. MTX [Concomitant]
     Active Substance: METHOTREXATE SODIUM
     Dates: start: 2009
  8. MTX [Concomitant]
     Active Substance: METHOTREXATE SODIUM
     Dates: end: 2010
  9. MTX [Concomitant]
     Active Substance: METHOTREXATE SODIUM
     Dates: end: 2009
  10. MTX [Concomitant]
     Active Substance: METHOTREXATE SODIUM
     Dates: start: 2009, end: 2009
  11. MTX [Concomitant]
     Active Substance: METHOTREXATE SODIUM
     Dates: start: 2010, end: 2011
  12. MTX [Concomitant]
     Active Substance: METHOTREXATE SODIUM
     Dates: start: 2011

REACTIONS (2)
  - Post procedural haematoma [Unknown]
  - Spinal osteoarthritis [Unknown]

NARRATIVE: CASE EVENT DATE: 20130615
